FAERS Safety Report 17993340 (Version 1)
Quarter: 2020Q3

REPORT INFORMATION
  Report Type: Spontaneous
  Country: GB (occurrence: GB)
  Receive Date: 20200708
  Receipt Date: 20200708
  Transmission Date: 20201103
  Serious: Yes (Other)
  Sender: FDA-Public Use
  Company Number: GB-TEVA-2020-GB-1797500

PATIENT
  Age: 20 Year
  Sex: Male
  Weight: 65 kg

DRUGS (2)
  1. LOPERAMIDE HYDROCHLORIDE. [Suspect]
     Active Substance: LOPERAMIDE HYDROCHLORIDE
     Indication: DIARRHOEA
     Dosage: 4 MG AT START DATE, 2MG PER BOWEL MOVEMENT (NORMALLY 2 ? 3 TIMES A DAY)
     Route: 048
     Dates: start: 20200614
  2. VALERIANA [Concomitant]
     Active Substance: VALERIAN

REACTIONS (1)
  - Hiccups [Not Recovered/Not Resolved]

NARRATIVE: CASE EVENT DATE: 20200615
